FAERS Safety Report 6591126-5 (Version None)
Quarter: 2010Q1

REPORT INFORMATION
  Report Type: 
  Country: None (occurrence: None)
  Receive Date: 20100219
  Receipt Date: 20090120
  Transmission Date: 20100710
  Serious: Yes (Other)
  Sender: FDA-Public Use
  Company Number: US-BRISTOL-MYERS SQUIBB COMPANY-14477277

PATIENT
  Age: 53 Year
  Sex: Female
  Weight: 84 kg

DRUGS (3)
  1. KENALOG [Suspect]
     Indication: SKIN ULCER
     Dosage: 80MG EVERY 2-3 WEEKS.
     Dates: start: 20080501, end: 20080730
  2. IBUPROFEN [Suspect]
     Dates: start: 20080501
  3. VALTREX [Suspect]
     Dates: start: 20080501

REACTIONS (12)
  - CHROMATURIA [None]
  - GAIT DISTURBANCE [None]
  - HEADACHE [None]
  - HEART RATE INCREASED [None]
  - HIP FRACTURE [None]
  - MICTURITION DISORDER [None]
  - NAUSEA [None]
  - NERVOUSNESS [None]
  - OEDEMA PERIPHERAL [None]
  - RETINAL DISORDER [None]
  - STAPHYLOCOCCAL INFECTION [None]
  - TREMOR [None]
